FAERS Safety Report 24377967 (Version 2)
Quarter: 2024Q4

REPORT INFORMATION
  Report Type: Report from Study
  Country: JP (occurrence: JP)
  Receive Date: 20240930
  Receipt Date: 20241010
  Transmission Date: 20250114
  Serious: Yes (Hospitalization)
  Sender: ROCHE
  Company Number: JP-CHUGAI-2024033242

PATIENT
  Age: 74 Year
  Sex: Female

DRUGS (5)
  1. VABYSMO [Suspect]
     Active Substance: FARICIMAB-SVOA
     Indication: Product used for unknown indication
     Dosage: 6 MG, RIGHT EYE, STRENGTH 120 MG/ML
     Route: 031
     Dates: start: 20230517, end: 20230517
  2. VABYSMO [Suspect]
     Active Substance: FARICIMAB-SVOA
     Dosage: 6 MG, LEFT EYE, STRENGTH 120 MG/ML
     Route: 031
     Dates: start: 20231108, end: 20240417
  3. VABYSMO [Suspect]
     Active Substance: FARICIMAB-SVOA
     Dosage: 6 MG, RIGHT EYE, STRENGTH 120 MG/ML
     Route: 031
     Dates: start: 20240425, end: 20240425
  4. LATANOPROST\TIMOLOL MALEATE [Concomitant]
     Active Substance: LATANOPROST\TIMOLOL MALEATE
     Route: 047
     Dates: start: 20220425
  5. ALPHAGAN P [Concomitant]
     Active Substance: BRIMONIDINE TARTRATE
     Dosage: UNK
     Route: 065
     Dates: start: 20230131

REACTIONS (1)
  - Loss of consciousness [Unknown]

NARRATIVE: CASE EVENT DATE: 20240101
